FAERS Safety Report 9286333 (Version 1)
Quarter: 2013Q2

REPORT INFORMATION
  Report Type: Spontaneous
  Country: IN (occurrence: None)
  Receive Date: 20130508
  Receipt Date: 20130508
  Transmission Date: 20140414
  Serious: Yes (Hospitalization, Other)
  Sender: FDA-Public Use
  Company Number: 2013P1005200

PATIENT
  Age: 20 Year
  Sex: Female

DRUGS (1)
  1. PHENYTOIN [Suspect]
     Indication: CONVULSION PROPHYLAXIS

REACTIONS (5)
  - Hypersomnia [None]
  - Cerebral haemorrhage [None]
  - Cerebellar atrophy [None]
  - Toxicity to various agents [None]
  - Cerebellar cognitive affective syndrome [None]
